FAERS Safety Report 6303657-3 (Version None)
Quarter: 2009Q3

REPORT INFORMATION
  Report Type: 
  Country: None (occurrence: None)
  Receive Date: 20090810
  Receipt Date: 20090730
  Transmission Date: 20100115
  Serious: Yes (Hospitalization)
  Sender: FDA-Public Use
  Company Number: PHHO2009DE09450

PATIENT
  Sex: Female
  Weight: 72 kg

DRUGS (3)
  1. RAD 666 RAD+TAB [Suspect]
     Indication: RENAL TRANSPLANT
     Dosage: OPEN-LABEL
     Route: 048
     Dates: start: 20080511, end: 20090729
  2. SANDIMMUNE [Suspect]
     Indication: RENAL TRANSPLANT
     Dosage: 50 MG, BID
     Route: 048
     Dates: start: 20080511
  3. URBASON [Suspect]
     Indication: RENAL TRANSPLANT
     Dosage: OPEN-LABEL
     Route: 048
     Dates: start: 20080511

REACTIONS (6)
  - DYSPHAGIA [None]
  - FLUID INTAKE REDUCED [None]
  - LOCAL SWELLING [None]
  - OROPHARYNGEAL CANCER STAGE UNSPECIFIED [None]
  - PYREXIA [None]
  - TRANSPLANT FAILURE [None]
